FAERS Safety Report 7361093-5 (Version None)
Quarter: 2011Q1

REPORT INFORMATION
  Report Type: 
  Country: None (occurrence: None)
  Receive Date: 20110318
  Receipt Date: 20110307
  Transmission Date: 20110831
  Serious: Yes (Hospitalization)
  Sender: FDA-Public Use
  Company Number: US-EISAI INC-E7389-00961-CLI-US

PATIENT
  Sex: Female
  Weight: 110 kg

DRUGS (7)
  1. MORPHINE [Concomitant]
     Indication: PAIN
     Route: 048
  2. ESCITALOPRAM [Concomitant]
     Route: 048
  3. NEXIUM [Concomitant]
     Route: 048
  4. E7389 (BOLD) [Suspect]
     Route: 041
     Dates: start: 20100607, end: 20100615
  5. MICARDIS HCT [Concomitant]
     Route: 048
  6. MORPHINE SULFATE [Concomitant]
     Indication: PAIN
     Route: 048
  7. DELTASONE [Concomitant]
     Route: 048

REACTIONS (3)
  - POSTERIOR REVERSIBLE ENCEPHALOPATHY SYNDROME [None]
  - PULMONARY EMBOLISM [None]
  - ARTHRALGIA [None]
